FAERS Safety Report 5453541-2 (Version None)
Quarter: 2007Q3

REPORT INFORMATION
  Report Type: 
  Country: None (occurrence: None)
  Receive Date: 20070913
  Receipt Date: 20070905
  Transmission Date: 20080115
  Serious: Yes (Hospitalization)
  Sender: FDA-Public Use
  Company Number: 2007-04113

PATIENT
  Age: 73 Year
  Sex: Female

DRUGS (7)
  1. ISONIAZID [Suspect]
     Indication: PULMONARY TUBERCULOSIS
     Dosage: 300 MG, DAILY,
     Dates: start: 20050530, end: 20050615
  2. RIFAMPICIN [Suspect]
     Indication: PULMONARY TUBERCULOSIS
     Dosage: 450 MG, DAILY, ORAL
     Route: 048
     Dates: start: 20050530, end: 20050615
  3. ETHAMBUTOL HYDROCHLORIDE [Suspect]
     Indication: PULMONARY TUBERCULOSIS
     Dosage: 750 MG, DAILY, ORAL
     Route: 048
     Dates: start: 20050530, end: 20050615
  4. PYRAZINAMIDE [Suspect]
     Indication: PULMONARY TUBERCULOSIS
     Dosage: 1.2 G, DAILY, ORAL
     Route: 048
     Dates: start: 20050530, end: 20050615
  5. MEROPENEM        (MEROPENEM) [Concomitant]
  6. AMIKACIN [Concomitant]
  7. CLARITHROMYCIN [Concomitant]

REACTIONS (5)
  - CONDITION AGGRAVATED [None]
  - DRUG INEFFECTIVE [None]
  - MYCOBACTERIUM ABSCESSUS INFECTION [None]
  - PARADOXICAL DRUG REACTION [None]
  - PULMONARY TUBERCULOSIS [None]
